FAERS Safety Report 10018387 (Version 1)
Quarter: 2014Q1

REPORT INFORMATION
  Report Type: Spontaneous
  Country: TR (occurrence: None)
  Receive Date: 20140312
  Receipt Date: 20140312
  Transmission Date: 20141002
  Serious: Yes (Other)
  Sender: FDA-Public Use
  Company Number: IMP_07504_2014

PATIENT
  Age: 36 Year
  Sex: Female

DRUGS (2)
  1. VALPROATE [Suspect]
     Indication: PRODUCT USED FOR UNKNOWN INDICATION
  2. RISPERIDONE [Concomitant]

REACTIONS (3)
  - Hyperammonaemic encephalopathy [None]
  - Delirium [None]
  - Alkalosis hypokalaemic [None]
